FAERS Safety Report 4761905-5 (Version None)
Quarter: 2005Q3

REPORT INFORMATION
  Report Type: 
  Country: None (occurrence: None)
  Receive Date: 20050831
  Receipt Date: 20050207
  Transmission Date: 20060218
  Serious: Yes (Other)
  Sender: FDA-Public Use
  Company Number: 2004226244US

PATIENT
  Age: 68 Year
  Sex: Male
  Weight: 81.63 kg

DRUGS (7)
  1. DETROL LA [Suspect]
     Indication: HYPERTONIC BLADDER
     Dosage: 4 MG (4 MG, 1 IN 1 D), ORAL
     Route: 048
     Dates: start: 20040520, end: 20040726
  2. ACETYLSALICYLIC ACID SRT [Concomitant]
  3. RAMIPRIL [Concomitant]
  4. ISOSORBIDE MONONITRATE [Concomitant]
  5. EZETIMIBE (EZETIMIBE) [Concomitant]
  6. ATENOLOL [Concomitant]
  7. ATORVASTATIN CALCIUM [Concomitant]

REACTIONS (1)
  - PALPITATIONS [None]
